FAERS Safety Report 10652344 (Version 1)
Quarter: 2014Q4

REPORT INFORMATION
  Report Type: Spontaneous
  Country: US (occurrence: None)
  Receive Date: 20141212
  Receipt Date: 20141212
  Transmission Date: 20150529
  Serious: No
  Sender: FDA-Public Use
  Company Number: None

PATIENT
  Age: 65 Year
  Sex: Female
  Weight: 73.94 kg

DRUGS (4)
  1. MUTTIPLE VITAMIN A DAY [Concomitant]
  2. NIFEDIPINE. [Suspect]
     Active Substance: NIFEDIPINE
     Indication: HYPERTENSION
     Dosage: 1 PILL DAILY?IN THE MORNING ?BY MOUTH
     Route: 048
  3. ANTIACIDS [Concomitant]
  4. NIFEDIPINE. [Concomitant]
     Active Substance: NIFEDIPINE

REACTIONS (2)
  - Nightmare [None]
  - Therapeutic response unexpected [None]
